FAERS Safety Report 22636934 (Version 1)
Quarter: 2023Q2

REPORT INFORMATION
  Report Type: Spontaneous
  Country: LT (occurrence: LT)
  Receive Date: 20230626
  Receipt Date: 20230626
  Transmission Date: 20230722
  Serious: Yes (Congenital Anomaly)
  Sender: FDA-Public Use
  Company Number: LT-TEVA-2023-LT-2900339

PATIENT

DRUGS (4)
  1. AJOVY [Suspect]
     Active Substance: FREMANEZUMAB-VFRM
     Indication: Product used for unknown indication
     Dosage: LAST DOSE USED ON 20-FEB-2023
     Route: 064
     Dates: start: 20200120
  2. HEPATITIS A VIRUS STRAIN HM175 ANTIGEN (FORMALDEHYDE INACTIVATED) [Concomitant]
     Active Substance: HEPATITIS A VIRUS STRAIN HM175 ANTIGEN (FORMALDEHYDE INACTIVATED)
     Indication: Prophylaxis
     Dosage: 1 DOSE
     Route: 064
     Dates: start: 20230124
  3. YELLOW FEVER VACCINE NOS [Concomitant]
     Active Substance: YELLOW FEVER VIRUS STRAIN 17D-204 LIVE ANTIGEN
     Indication: Prophylaxis
     Dosage: 1 DOSE
     Route: 064
     Dates: start: 20230124
  4. Typhoid fever Vaccine [Concomitant]
     Indication: Prophylaxis
     Dosage: 1 DOSE
     Route: 064
     Dates: start: 20230124

REACTIONS (2)
  - Congenital anomaly [Unknown]
  - Foetal exposure during pregnancy [Unknown]

NARRATIVE: CASE EVENT DATE: 20230101
